FAERS Safety Report 9173407 (Version 2)
Quarter: 2013Q2

REPORT INFORMATION
  Report Type: Spontaneous
  Country: US (occurrence: US)
  Receive Date: 20130320
  Receipt Date: 20130402
  Transmission Date: 20140414
  Serious: No
  Sender: FDA-Public Use
  Company Number: US-BAYER-2013-034592

PATIENT
  Age: 32 Year
  Sex: Male

DRUGS (3)
  1. ALEVE CAPLET [Suspect]
     Indication: HEADACHE
  2. BAYER GENUINE ASPIRIN ORIGINAL STRENGTH [Suspect]
     Indication: HEADACHE
  3. ADVIL [Concomitant]

REACTIONS (1)
  - Drug ineffective [None]
